FAERS Safety Report 6529210-4 (Version None)
Quarter: 2009Q4

REPORT INFORMATION
  Report Type: 
  Country: None (occurrence: None)
  Receive Date: 20091231
  Receipt Date: 20091222
  Transmission Date: 20100525
  Serious: Yes (Disabling, Other)
  Sender: FDA-Public Use
  Company Number: 2009-04399

PATIENT
  Age: 44 Year
  Sex: Male
  Weight: 85 kg

DRUGS (2)
  1. VELCADE [Suspect]
     Indication: MULTIPLE MYELOMA
     Dosage: 2.5 MG, INTRAVENOUS
     Route: 042
     Dates: start: 20090523, end: 20090810
  2. DEXAMETHASONE TAB [Concomitant]

REACTIONS (12)
  - ACTIVITIES OF DAILY LIVING IMPAIRED [None]
  - ANHIDROSIS [None]
  - BLOOD CHLORIDE DECREASED [None]
  - DIARRHOEA [None]
  - DYSSTASIA [None]
  - HYPOAESTHESIA [None]
  - HYPONATRAEMIA [None]
  - LUNG INFECTION [None]
  - MUSCLE SPASMS [None]
  - PERIPHERAL COLDNESS [None]
  - PYREXIA [None]
  - VISION BLURRED [None]
